FAERS Safety Report 18935736 (Version 1)
Quarter: 2021Q1

REPORT INFORMATION
  Report Type: Spontaneous
  Country: US (occurrence: US)
  Receive Date: 20210224
  Receipt Date: 20210224
  Transmission Date: 20210420
  Serious: No
  Sender: FDA-Public Use
  Company Number: US-SA-2021SA060035

PATIENT
  Age: 53 Year
  Sex: Male

DRUGS (7)
  1. DULERA [Concomitant]
     Active Substance: FORMOTEROL FUMARATE DIHYDRATE\MOMETASONE FUROATE
     Dosage: 100?5 MCG
  2. TYLENOL [Concomitant]
     Active Substance: ACETAMINOPHEN
     Dosage: 325 MG
  3. MAGNESIUM [Concomitant]
     Active Substance: MAGNESIUM
     Dosage: 200 MG
  4. VITAMIN B1 [Concomitant]
     Active Substance: THIAMINE HYDROCHLORIDE
     Dosage: 100MG
  5. DUPIXENT [Suspect]
     Active Substance: DUPILUMAB
     Indication: NASAL POLYPS
     Dosage: 300 MG, QOW
     Route: 058
  6. VITAMIN C [Concomitant]
     Active Substance: ASCORBIC ACID
     Dosage: 1000 MG
  7. CALCIUM+D [Concomitant]
     Active Substance: CALCIUM\VITAMIN D
     Dosage: 500MG?1000MG CHEW
     Route: 048

REACTIONS (3)
  - Injection site pain [Unknown]
  - Injection site erythema [Unknown]
  - Injection site swelling [Unknown]
